FAERS Safety Report 21394160 (Version 1)
Quarter: 2022Q3

REPORT INFORMATION
  Report Type: Report from Study
  Country: CA (occurrence: CA)
  Receive Date: 20220930
  Receipt Date: 20220930
  Transmission Date: 20221027
  Serious: Yes (Other)
  Sender: FDA-Public Use
  Company Number: CA-BEH-2022150130

PATIENT
  Age: 68 Year
  Sex: Female

DRUGS (3)
  1. HIZENTRA [Suspect]
     Active Substance: HUMAN IMMUNOGLOBULIN G
     Indication: Primary immunodeficiency syndrome
     Dosage: 2 GRAM SIX TIMES WEEKLY
     Route: 065
     Dates: start: 20160810
  2. DIVALPROEX SODIUM [Concomitant]
     Active Substance: DIVALPROEX SODIUM
     Indication: Product used for unknown indication
     Route: 048
  3. PENTALOX [Concomitant]
     Indication: Product used for unknown indication
     Route: 048

REACTIONS (2)
  - Colitis microscopic [Not Recovered/Not Resolved]
  - Immune system disorder [Unknown]

NARRATIVE: CASE EVENT DATE: 20220101
